FAERS Safety Report 10998721 (Version 2)
Quarter: 2015Q2

REPORT INFORMATION
  Report Type: Spontaneous
  Country: JP (occurrence: JP)
  Receive Date: 20150408
  Receipt Date: 20150415
  Transmission Date: 20150821
  Serious: Yes (Hospitalization)
  Sender: FDA-Public Use
  Company Number: JP-EISAI MEDICAL RESEARCH-EC-2015-005714

PATIENT
  Sex: Female

DRUGS (2)
  1. EXCEGRAN [Suspect]
     Active Substance: ZONISAMIDE
     Route: 048
     Dates: start: 20150403, end: 20150403
  2. EXCEGRAN [Suspect]
     Active Substance: ZONISAMIDE
     Indication: PRODUCT USED FOR UNKNOWN INDICATION
     Dosage: UNKNOWN
     Route: 048
     Dates: end: 20150402

REACTIONS (2)
  - Coma [Recovered/Resolved]
  - Intentional overdose [Recovered/Resolved]

NARRATIVE: CASE EVENT DATE: 20150403
